FAERS Safety Report 23673869 (Version 1)
Quarter: 2024Q1

REPORT INFORMATION
  Report Type: Spontaneous
  Country: GB (occurrence: GB)
  Receive Date: 20240326
  Receipt Date: 20240326
  Transmission Date: 20240409
  Serious: Yes (Death, Other)
  Sender: FDA-Public Use
  Company Number: GB-BAYER-2024A036540

PATIENT
  Sex: Male

DRUGS (2)
  1. DOCETAXEL [Suspect]
     Active Substance: DOCETAXEL\DOCETAXEL ANHYDROUS
     Dosage: UNK
  2. NUBEQA [Suspect]
     Active Substance: DAROLUTAMIDE
     Indication: Prostate cancer
     Dosage: UNK

REACTIONS (3)
  - Biliary obstruction [Fatal]
  - Prostatic specific antigen increased [Unknown]
  - Hepatotoxicity [Unknown]
